FAERS Safety Report 19483577 (Version 1)
Quarter: 2021Q3

REPORT INFORMATION
  Report Type: Spontaneous
  Country: US (occurrence: US)
  Receive Date: 20210701
  Receipt Date: 20210701
  Transmission Date: 20211014
  Serious: Yes (Hospitalization)
  Sender: FDA-Public Use
  Company Number: US-MYLANLABS-2021M1038885

PATIENT
  Age: 20 Year
  Sex: Male

DRUGS (10)
  1. CANNABIDIOL [Concomitant]
     Active Substance: CANNABIDIOL
     Indication: VOMITING
  2. METOCLOPRAMIDE. [Suspect]
     Active Substance: METOCLOPRAMIDE
     Indication: NAUSEA
     Dosage: UNK
     Route: 065
  3. PROMETHAZINE [Suspect]
     Active Substance: PROMETHAZINE HYDROCHLORIDE
     Indication: NAUSEA
     Dosage: UNK
     Route: 065
  4. CANNABIDIOL [Concomitant]
     Active Substance: CANNABIDIOL
     Indication: NAUSEA
     Dosage: GUMMY CANDIES
     Route: 065
  5. ONDANSETRON [Suspect]
     Active Substance: ONDANSETRON
     Indication: VOMITING
  6. METOCLOPRAMIDE. [Suspect]
     Active Substance: METOCLOPRAMIDE
     Indication: VOMITING
  7. ONDANSETRON [Suspect]
     Active Substance: ONDANSETRON
     Indication: NAUSEA
     Dosage: UNK
     Route: 065
  8. PROMETHAZINE [Suspect]
     Active Substance: PROMETHAZINE HYDROCHLORIDE
     Indication: VOMITING
  9. CANNABIDIOL [Concomitant]
     Active Substance: CANNABIDIOL
     Indication: VOMITING
  10. CANNABIDIOL [Concomitant]
     Active Substance: CANNABIDIOL
     Indication: NAUSEA
     Dosage: VAPOUR
     Route: 065

REACTIONS (1)
  - Drug ineffective [Unknown]
